FAERS Safety Report 6533362-X (Version None)
Quarter: 2010Q1

REPORT INFORMATION
  Report Type: 
  Country: None (occurrence: None)
  Receive Date: 20100111
  Receipt Date: 20091229
  Transmission Date: 20100710
  Serious: Yes (Hospitalization)
  Sender: FDA-Public Use
  Company Number: B0624290A

PATIENT
  Sex: Male

DRUGS (10)
  1. BUSULPHAN [Suspect]
     Route: 048
  2. CYCLOPHOSPHAMIDE [Suspect]
     Dosage: 60MGK PER DAY
     Route: 042
  3. FLUCONAZOLE [Concomitant]
     Route: 065
  4. FLUOROQUINOLONE [Concomitant]
     Route: 065
  5. TRIMETHOPRIM + SULFAMETHOXAZOLE [Concomitant]
     Indication: PROPHYLAXIS
  6. ACYCLOVIR [Concomitant]
     Indication: PROPHYLAXIS
  7. FILGRASTIM [Concomitant]
     Route: 042
  8. URSODIOL [Concomitant]
     Indication: PROPHYLAXIS
     Route: 065
  9. MESNA [Concomitant]
     Indication: PROPHYLAXIS
  10. PHENYTOIN [Concomitant]
     Route: 065

REACTIONS (4)
  - ASCITES [None]
  - BLOOD BILIRUBIN INCREASED [None]
  - VENOOCCLUSIVE LIVER DISEASE [None]
  - WEIGHT INCREASED [None]
